FAERS Safety Report 23553037 (Version 1)
Quarter: 2024Q1

REPORT INFORMATION
  Report Type: Spontaneous
  Country: US (occurrence: None)
  Receive Date: 20240221
  Receipt Date: 20240221
  Transmission Date: 20240410
  Serious: Yes (Hospitalization)
  Sender: FDA-Public Use
  Company Number: None

PATIENT
  Age: 75 Year
  Sex: Female
  Weight: 55 kg

DRUGS (2)
  1. ERTAPENEM [Suspect]
     Active Substance: ERTAPENEM
     Indication: Antimicrobial susceptibility test resistant
     Dosage: FREQUENCY : DAILY;?
     Route: 042
     Dates: start: 20240217, end: 20240220
  2. ERTAPENEM [Suspect]
     Active Substance: ERTAPENEM
     Indication: Proteus test positive

REACTIONS (3)
  - Neurotoxicity [None]
  - Lethargy [None]
  - Mental status changes [None]

NARRATIVE: CASE EVENT DATE: 20240219
